FAERS Safety Report 7833305-2 (Version None)
Quarter: 2011Q4

REPORT INFORMATION
  Report Type: 
  Country: None (occurrence: None)
  Receive Date: 20111024
  Receipt Date: 20111017
  Transmission Date: 20120403
  Serious: Yes (Hospitalization)
  Sender: FDA-Public Use
  Company Number: FR-EISAI INC-E2020-09869-SPO-FR

PATIENT
  Sex: Male

DRUGS (8)
  1. TRANDOLAPRIL [Concomitant]
     Route: 048
  2. ACTONEL [Suspect]
     Dosage: 35 MG WEEKLY
     Route: 048
  3. ATORVASTATIN CALCIUM [Concomitant]
     Dosage: 10 MG DAILY
     Route: 048
  4. BI-TILDIEM LP [Concomitant]
     Dosage: 180 MG DAILY
     Route: 048
  5. CITALOPRAM HYDROBROMIDE [Suspect]
     Dosage: 0.5 UNITS DAILY
     Route: 048
  6. PENTOXIFYLLINE [Suspect]
     Indication: ATRIAL FIBRILLATION
     Dosage: 20 MG OR 25 MG (ALTERED EACH TWO DAYS)
     Route: 048
     Dates: end: 20110903
  7. DENSICAL [Concomitant]
     Dosage: 500 MG DAILY
  8. ARICEPT [Suspect]
     Indication: DEMENTIA ALZHEIMER'S TYPE
     Route: 048

REACTIONS (5)
  - INTERNATIONAL NORMALISED RATIO INCREASED [None]
  - GASTROINTESTINAL HAEMORRHAGE [None]
  - DUODENAL ULCER [None]
  - MALAISE [None]
  - ANAEMIA [None]
